FAERS Safety Report 24727398 (Version 2)
Quarter: 2025Q2

REPORT INFORMATION
  Report Type: Report from Study
  Country: US (occurrence: US)
  Receive Date: 20241212
  Receipt Date: 20250409
  Transmission Date: 20250716
  Serious: Yes (Other)
  Sender: CSL BEHRING
  Company Number: US-Vifor (International) Inc.-VIT-2024-10490

PATIENT
  Sex: Male
  Weight: 85.4 kg

DRUGS (2)
  1. VELPHORO [Suspect]
     Active Substance: SUCROFERRIC OXYHYDROXIDE
     Dosage: 500MG TABLET 1EACH MEALS/3MEALS.
     Route: 048
  2. VELPHORO [Suspect]
     Active Substance: SUCROFERRIC OXYHYDROXIDE
     Route: 048
     Dates: start: 20241110

REACTIONS (4)
  - Parkinson^s disease [Unknown]
  - Laboratory test abnormal [Recovered/Resolved]
  - Depression [Recovered/Resolved]
  - Treatment noncompliance [Unknown]
